FAERS Safety Report 10382409 (Version 1)
Quarter: 2014Q3

REPORT INFORMATION
  Report Type: Spontaneous
  Country: US (occurrence: US)
  Receive Date: 20140813
  Receipt Date: 20140813
  Transmission Date: 20150326
  Serious: No
  Sender: FDA-Public Use
  Company Number: US-PFIZER INC-2014222093

PATIENT
  Age: 75 Year
  Sex: Female
  Weight: 68.93 kg

DRUGS (2)
  1. PINDOLOL. [Concomitant]
     Active Substance: PINDOLOL
     Indication: HYPERTENSION
     Dosage: 5MG, TWO TIMES A DAY
  2. ADVIL [Suspect]
     Active Substance: IBUPROFEN
     Indication: MYALGIA
     Dosage: 200 MG, AS NEEDED
     Route: 048
     Dates: start: 201407

REACTIONS (2)
  - Pruritus [Unknown]
  - Mass [Unknown]

NARRATIVE: CASE EVENT DATE: 201407
